FAERS Safety Report 4335657-7 (Version None)
Quarter: 2004Q2

REPORT INFORMATION
  Report Type: 
  Country: None (occurrence: None)
  Receive Date: 20040406
  Receipt Date: 20040329
  Transmission Date: 20050107
  Serious: Yes (Hospitalization)
  Sender: FDA-Public Use
  Company Number: 2004AC00054

PATIENT
  Age: 46 Year
  Sex: Male

DRUGS (2)
  1. QUETIAPINE [Suspect]
     Indication: SCHIZOPHRENIA, PARANOID TYPE
     Dosage: 300 MG DAILY PO
     Route: 048
  2. RISPERIDONE [Concomitant]

REACTIONS (2)
  - CONDITION AGGRAVATED [None]
  - PSYCHOTIC DISORDER [None]
